FAERS Safety Report 4446160-8 (Version None)
Quarter: 2004Q3

REPORT INFORMATION
  Report Type: 
  Country: None (occurrence: None)
  Receive Date: 20040903
  Receipt Date: 20040824
  Transmission Date: 20050211
  Serious: Yes (Life-Threatening, Hospitalization)
  Sender: FDA-Public Use
  Company Number: 2004-BP-07188AU

PATIENT
  Age: 71 Year
  Sex: Female

DRUGS (5)
  1. MOBIC [Suspect]
     Dosage: 15 MG (15 MG, 15MG ORALLY DAILY) PO
     Route: 048
     Dates: start: 20031014, end: 20031017
  2. LANOTIL [Concomitant]
  3. COVERSYL PLUS (BI PREDONIUM) [Concomitant]
  4. ZONTEC [Concomitant]
  5. PAROXETINE FORTE (PANADEINE CO) [Concomitant]

REACTIONS (3)
  - ABDOMINAL RIGIDITY [None]
  - DUODENAL ULCER PERFORATION [None]
  - TACHYCARDIA [None]
